FAERS Safety Report 25284824 (Version 2)
Quarter: 2025Q2

REPORT INFORMATION
  Report Type: Spontaneous
  Country: US (occurrence: US)
  Receive Date: 20250508
  Receipt Date: 20250519
  Transmission Date: 20250717
  Serious: Yes (Other)
  Sender: SANOFI AVENTIS
  Company Number: US-SA-2025SA130655

PATIENT
  Age: 73 Year
  Sex: Female

DRUGS (1)
  1. DUPIXENT [Suspect]
     Active Substance: DUPILUMAB
     Indication: Asthma
     Dosage: 300 MG, QOW
     Route: 058
     Dates: end: 202505

REACTIONS (10)
  - Anxiety [Unknown]
  - Decreased appetite [Unknown]
  - Illness [Unknown]
  - Dyspnoea [Unknown]
  - Wound [Unknown]
  - Musculoskeletal discomfort [Unknown]
  - Food craving [Unknown]
  - Insomnia [Unknown]
  - Rash pruritic [Not Recovered/Not Resolved]
  - Arthralgia [Unknown]

NARRATIVE: CASE EVENT DATE: 20250505
